FAERS Safety Report 6967630-4 (Version None)
Quarter: 2010Q3

REPORT INFORMATION
  Report Type: 
  Country: None (occurrence: None)
  Receive Date: 20100901
  Receipt Date: 20100819
  Transmission Date: 20110219
  Serious: Yes (Other)
  Sender: FDA-Public Use
  Company Number: 2010MA001855

PATIENT
  Age: 32 Year
  Sex: Female

DRUGS (1)
  1. SPIRONOLACTONE [Suspect]
     Indication: POLYCYSTIC OVARIES
     Dosage: 50 MG;BID

REACTIONS (3)
  - ACNE CYSTIC [None]
  - CONFUSIONAL STATE [None]
  - TONGUE CYST [None]
